FAERS Safety Report 17647126 (Version 1)
Quarter: 2020Q2

REPORT INFORMATION
  Report Type: Spontaneous
  Country: CN (occurrence: CN)
  Receive Date: 20200408
  Receipt Date: 20200408
  Transmission Date: 20200713
  Serious: Yes (Hospitalization)
  Sender: FDA-Public Use
  Company Number: CN-PFIZER INC-2020142039

PATIENT
  Age: 23 Year
  Sex: Female

DRUGS (3)
  1. METHOTREXATE. [Suspect]
     Active Substance: METHOTREXATE
     Indication: ABORTION INDUCED
     Dosage: 70.000 MG, 1X/DAY
     Route: 030
     Dates: start: 20200311, end: 20200311
  2. HAN ZHU TING [Concomitant]
     Indication: ABORTION INDUCED
     Dosage: 100.000 MG, 2X/DAY
     Route: 048
     Dates: start: 20200311, end: 20200317
  3. METHOTREXATE. [Suspect]
     Active Substance: METHOTREXATE
     Dosage: 70.000 MG, 1X/DAY
     Route: 030
     Dates: start: 20200316, end: 20200316

REACTIONS (7)
  - Acute kidney injury [Not Recovered/Not Resolved]
  - Product use in unapproved indication [Unknown]
  - Mouth ulceration [Not Recovered/Not Resolved]
  - Gastrointestinal disorder [Not Recovered/Not Resolved]
  - Bone marrow failure [Not Recovered/Not Resolved]
  - Rash [Not Recovered/Not Resolved]
  - Off label use [Unknown]

NARRATIVE: CASE EVENT DATE: 20200319
